FAERS Safety Report 10902611 (Version 2)
Quarter: 2015Q1

REPORT INFORMATION
  Report Type: Spontaneous
  Country: FR (occurrence: FR)
  Receive Date: 20150310
  Receipt Date: 20150330
  Transmission Date: 20150721
  Serious: Yes (Other)
  Sender: FDA-Public Use
  Company Number: FR-SA-2015SA026722

PATIENT
  Sex: Female

DRUGS (2)
  1. THYROGEN [Suspect]
     Active Substance: THYROTROPIN ALFA
     Dosage: 1 INJECTION/DAY
     Route: 065
     Dates: start: 20150202, end: 20150203
  2. LEVOTHYROX [Concomitant]
     Active Substance: LEVOTHYROXINE
     Dosage: DOSE: 1.75

REACTIONS (6)
  - Feeling abnormal [Unknown]
  - Tracheitis [Unknown]
  - Fatigue [Unknown]
  - Postmenopausal haemorrhage [Recovered/Resolved]
  - Pharyngeal erythema [Unknown]
  - Oropharyngeal pain [Unknown]

NARRATIVE: CASE EVENT DATE: 2015
